FAERS Safety Report 8512992-X (Version None)
Quarter: 2012Q3

REPORT INFORMATION
  Report Type: 
  Country: None (occurrence: None)
  Receive Date: 20120705
  Receipt Date: 20120621
  Transmission Date: 20120928
  Serious: Yes (Other)
  Sender: FDA-Public Use
  Company Number: FK201201792

PATIENT
  Age: 66 Year
  Sex: Female

DRUGS (8)
  1. ZANTAC [Concomitant]
  2. PACLITAXEL [Suspect]
     Indication: OVARIAN CANCER
     Dosage: 283 MG, INTRAVENOUS (NO OTHERWISE SPECIFIED)
     Route: 042
     Dates: start: 20120326, end: 20120416
  3. OMEPRAZOLE [Concomitant]
  4. CARBOPLATIN [Concomitant]
  5. PREDNISOLONE [Concomitant]
  6. HISTEC (CETIRIZINE HYDROCHLORIDE) [Concomitant]
  7. ORADEXON (DEXAMETHASONE) [Concomitant]
  8. KYTRIL [Concomitant]

REACTIONS (1)
  - HYPERSENSITIVITY [None]
